FAERS Safety Report 19549151 (Version 1)
Quarter: 2021Q3

REPORT INFORMATION
  Report Type: Spontaneous
  Country: US (occurrence: US)
  Receive Date: 20210715
  Receipt Date: 20210715
  Transmission Date: 20211014
  Serious: Yes (Hospitalization)
  Sender: FDA-Public Use
  Company Number: None

PATIENT
  Sex: Female

DRUGS (18)
  1. ACETYLSALICY POW ACID [Concomitant]
  2. FISH OIL [Concomitant]
     Active Substance: FISH OIL
  3. IMMUNE ENHANCE [Concomitant]
  4. MAXAIR [Concomitant]
     Active Substance: PIRBUTEROL ACETATE
  5. ZYRTEC [Concomitant]
     Active Substance: CETIRIZINE HYDROCHLORIDE
  6. CIMZIA [Suspect]
     Active Substance: CERTOLIZUMAB PEGOL
     Indication: RHEUMATOID ARTHRITIS
     Dosage: ?          OTHER FREQUENCY:Q14D;?
     Route: 058
     Dates: start: 20170420
  7. CALCIUM [Concomitant]
     Active Substance: CALCIUM
  8. ENBREL [Concomitant]
     Active Substance: ETANERCEPT
  9. PROBIOTIC [Concomitant]
     Active Substance: PROBIOTICS NOS
  10. VIT D [Concomitant]
     Active Substance: VITAMIN D NOS
  11. ZOCOR [Concomitant]
     Active Substance: SIMVASTATIN
  12. ASTEPRO [Concomitant]
     Active Substance: AZELASTINE HYDROCHLORIDE
  13. FLOVENT [Concomitant]
     Active Substance: FLUTICASONE PROPIONATE
  14. LEXAPRO [Concomitant]
     Active Substance: ESCITALOPRAM OXALATE
  15. VAGIFEM [Concomitant]
     Active Substance: ESTRADIOL
  16. SINGULAIR [Concomitant]
     Active Substance: MONTELUKAST SODIUM
  17. EVE PRIM OIL [Concomitant]
  18. LEVOXYL [Concomitant]
     Active Substance: LEVOTHYROXINE SODIUM

REACTIONS (1)
  - Hospitalisation [None]
